FAERS Safety Report 11243220 (Version 1)
Quarter: 2015Q3

REPORT INFORMATION
  Report Type: Spontaneous
  Country: US (occurrence: None)
  Receive Date: 20150702
  Receipt Date: 20150702
  Transmission Date: 20151125
  Serious: Yes (Other)
  Sender: FDA-Public Use
  Company Number: None

PATIENT
  Age: 57 Year
  Sex: Female

DRUGS (20)
  1. FREESTYLE FREEDOM LIFE MONITOR [Concomitant]
  2. ATENOLOL. [Concomitant]
     Active Substance: ATENOLOL
  3. BENAZEPRIL [Concomitant]
     Active Substance: BENAZEPRIL HYDROCHLORIDE
  4. ASPIRIN. [Concomitant]
     Active Substance: ASPIRIN
  5. METFORMIN [Concomitant]
     Active Substance: METFORMIN HYDROCHLORIDE
  6. LORATADINE. [Concomitant]
     Active Substance: LORATADINE
  7. NORTIPTYLINE [Concomitant]
     Active Substance: NORTRIPTYLINE
  8. SIMVASTATIN. [Concomitant]
     Active Substance: SIMVASTATIN
  9. FOAMATINE [Concomitant]
  10. FREESTYLE TEST STRIPS [Concomitant]
  11. TYLENOL DECONGESTANT [Concomitant]
  12. ACETOMESTEPHINE (TYLENOL) [Concomitant]
  13. LORATADINE. [Concomitant]
     Active Substance: LORATADINE
  14. FLUTICASON [Concomitant]
     Active Substance: FLUTICASONE\FLUTICASONE PROPIONATE
  15. FLINTSTONE CHEWABLE MULTIVITAMINS [Concomitant]
  16. FREESTYLE LANCETS [Concomitant]
  17. LANTUS [Suspect]
     Active Substance: INSULIN GLARGINE
     Dosage: ONE 10ML VIAL?0.4ML INTO THE SKIN BEDTIME?
     Dates: start: 20150522, end: 20150527
  18. GLIPIZIDE. [Concomitant]
     Active Substance: GLIPIZIDE
  19. BD INSULIN SYRINGE ULTRA-FINE [Concomitant]
  20. OMEPRAZOLE. [Concomitant]
     Active Substance: OMEPRAZOLE

REACTIONS (6)
  - Dysstasia [None]
  - Injection site pain [None]
  - Movement disorder [None]
  - Injection site erythema [None]
  - Paraesthesia [None]
  - Gait disturbance [None]

NARRATIVE: CASE EVENT DATE: 20150523
